FAERS Safety Report 6897727-9 (Version None)
Quarter: 2010Q3

REPORT INFORMATION
  Report Type: 
  Country: None (occurrence: None)
  Receive Date: 20100802
  Receipt Date: 20070723
  Transmission Date: 20110219
  Serious: No
  Sender: FDA-Public Use
  Company Number: US-PFIZER INC-2007029579

PATIENT
  Sex: Female
  Weight: 61.2 kg

DRUGS (6)
  1. PREGABALIN [Suspect]
     Indication: BACK PAIN
     Dates: start: 20070314, end: 20070321
  2. PREGABALIN [Suspect]
     Indication: NEURALGIA
  3. ALL OTHER THERAPEUTIC PRODUCTS [Suspect]
  4. SINEMET [Concomitant]
  5. NORVASC [Concomitant]
  6. LEXAPRO [Concomitant]

REACTIONS (3)
  - ADVERSE DRUG REACTION [None]
  - EYE DISORDER [None]
  - VISION BLURRED [None]
